FAERS Safety Report 7687305-6 (Version None)
Quarter: 2011Q3

REPORT INFORMATION
  Report Type: 
  Country: None (occurrence: None)
  Receive Date: 20110816
  Receipt Date: 20110601
  Transmission Date: 20111222
  Serious: No
  Sender: FDA-Public Use
  Company Number: US-BRISTOL-MYERS SQUIBB COMPANY-15768690

PATIENT
  Age: 52 Year
  Sex: Male

DRUGS (2)
  1. ZIDOVUDINE [Concomitant]
  2. ZERIT [Suspect]
     Dates: start: 19980101, end: 20030401

REACTIONS (4)
  - HYPOAESTHESIA [None]
  - FAT TISSUE INCREASED [None]
  - VASODILATATION [None]
  - MUSCLE ATROPHY [None]
